FAERS Safety Report 20708981 (Version 4)
Quarter: 2022Q2

REPORT INFORMATION
  Report Type: Report from Study
  Country: US (occurrence: US)
  Receive Date: 20220414
  Receipt Date: 20220520
  Transmission Date: 20220721
  Serious: No
  Sender: FDA-Public Use
  Company Number: US-NOVARTISTESTPH-NVSC2022US084666

PATIENT
  Sex: Male

DRUGS (2)
  1. COSENTYX [Suspect]
     Active Substance: SECUKINUMAB
     Indication: Product used for unknown indication
     Dosage: UNK
     Route: 065
  2. COSENTYX [Suspect]
     Active Substance: SECUKINUMAB
     Dosage: UNK
     Route: 065

REACTIONS (13)
  - Pain [Unknown]
  - Ear pain [Unknown]
  - Dyspnoea [Unknown]
  - Malaise [Unknown]
  - Tinnitus [Unknown]
  - Pain in extremity [Unknown]
  - Arthralgia [Unknown]
  - Prostatic specific antigen increased [Unknown]
  - Illness [Unknown]
  - Fatigue [Unknown]
  - Lung disorder [Unknown]
  - Hypoacusis [Unknown]
  - Headache [Unknown]
